FAERS Safety Report 15889907 (Version 2)
Quarter: 2019Q1

REPORT INFORMATION
  Report Type: Report from Study
  Country: US (occurrence: US)
  Receive Date: 20190130
  Receipt Date: 20190226
  Transmission Date: 20190417
  Serious: Yes (Hospitalization)
  Sender: FDA-Public Use
  Company Number: US-BAUSCH-BL-2019-001501

PATIENT
  Age: 73 Year
  Sex: Female
  Weight: 68.1 kg

DRUGS (3)
  1. SILIQ [Suspect]
     Active Substance: BRODALUMAB
     Dosage: 1 INJECTION AT EVERY 2 WEEKS
     Route: 058
     Dates: start: 201812
  2. SILIQ [Suspect]
     Active Substance: BRODALUMAB
     Dosage: USED 2 INJECTIONS SOMETIME
     Route: 058
     Dates: start: 201812, end: 201812
  3. SILIQ [Suspect]
     Active Substance: BRODALUMAB
     Indication: PSORIASIS
     Dosage: 1 INJECTION AT WEEKS 0, 1, 2,
     Route: 058
     Dates: start: 20181213, end: 201812

REACTIONS (6)
  - Erythema [Not Recovered/Not Resolved]
  - Abdominal pain [Recovered/Resolved]
  - Extra dose administered [Unknown]
  - Chest pain [Not Recovered/Not Resolved]
  - Back pain [Not Recovered/Not Resolved]
  - Diarrhoea [Recovered/Resolved]

NARRATIVE: CASE EVENT DATE: 201812
